FAERS Safety Report 7406991-9 (Version None)
Quarter: 2011Q2

REPORT INFORMATION
  Report Type: 
  Country: None (occurrence: None)
  Receive Date: 20110411
  Receipt Date: 20110405
  Transmission Date: 20111010
  Serious: Yes (Other)
  Sender: FDA-Public Use
  Company Number: US-PFIZER INC-2011076231

PATIENT

DRUGS (1)
  1. VFEND [Suspect]

REACTIONS (1)
  - SQUAMOUS CELL CARCINOMA [None]
